FAERS Safety Report 10470405 (Version 1)
Quarter: 2014Q3

REPORT INFORMATION
  Report Type: Spontaneous
  Country: TR (occurrence: TR)
  Receive Date: 20140923
  Receipt Date: 20140923
  Transmission Date: 20150326
  Serious: Yes (Hospitalization)
  Sender: FDA-Public Use
  Company Number: TR-MYLANLABS-2014M1004993

PATIENT

DRUGS (2)
  1. MODAFINIL. [Suspect]
     Active Substance: MODAFINIL
     Indication: HYPERSOMNIA
     Dosage: 200 MG, QD
     Route: 048
  2. MODAFINIL. [Suspect]
     Active Substance: MODAFINIL
     Dosage: 300 MG, QD
     Route: 048

REACTIONS (1)
  - Female orgasmic disorder [Recovered/Resolved]
